FAERS Safety Report 7734474-5 (Version None)
Quarter: 2011Q3

REPORT INFORMATION
  Report Type: 
  Country: None (occurrence: None)
  Receive Date: 20110907
  Receipt Date: 20110831
  Transmission Date: 20111222
  Serious: Yes (Other)
  Sender: FDA-Public Use
  Company Number: US-TEVA-288213USA

PATIENT
  Sex: Female

DRUGS (11)
  1. LOSARTAN POTASSIUM [Concomitant]
     Dosage: 50 MILLIGRAM;
  2. CLOPIDOGREL [Concomitant]
     Dosage: 75 MILLIGRAM;
     Route: 048
  3. METOPROLOL [Concomitant]
     Dosage: 100 MILLIGRAM; ER
     Route: 048
  4. ALENDRONIC ACID [Suspect]
     Indication: OSTEOPOROSIS
     Dosage: 10 MILLIGRAM;
     Route: 048
     Dates: start: 20110301
  5. LEVOTHYROXINE SODIUM [Concomitant]
     Dosage: 50 MICROGRAM;
     Route: 048
  6. ACETYLSALICYLIC ACID SRT [Concomitant]
     Dosage: 81 MILLIGRAM;
     Route: 048
  7. MULTI-VITAMIN [Concomitant]
     Dosage: Q AM
     Route: 048
  8. CALCIUM CARBONATE [Concomitant]
     Dosage: 1200 MILLIGRAM;
  9. EZETIMIBE [Concomitant]
     Dosage: 10/40 MG Q AM
     Route: 048
  10. ERGOCALCIFEROL [Concomitant]
     Dosage: 2000 UNITS Q AM
     Route: 048
  11. OXAZEPAM [Concomitant]
     Dosage: 10 MG TID PRN
     Route: 048

REACTIONS (8)
  - PAIN [None]
  - ABDOMINAL PAIN [None]
  - DEPRESSION [None]
  - FATIGUE [None]
  - DECREASED APPETITE [None]
  - MALAISE [None]
  - NAUSEA [None]
  - MUSCULOSKELETAL STIFFNESS [None]
